FAERS Safety Report 7117636-X (Version None)
Quarter: 2010Q4

REPORT INFORMATION
  Report Type: 
  Country: None (occurrence: None)
  Receive Date: 20101122
  Receipt Date: 20101117
  Transmission Date: 20110411
  Serious: Yes (Hospitalization)
  Sender: FDA-Public Use
  Company Number: FR-BRISTOL-MYERS SQUIBB COMPANY-15393382

PATIENT
  Age: 52 Year
  Sex: Male

DRUGS (1)
  1. IRBESARTAN [Suspect]
     Indication: HYPERTENSION
     Dosage: 1DF:1TAB
     Route: 048
     Dates: start: 20100501

REACTIONS (9)
  - CYANOSIS [None]
  - DYSGEUSIA [None]
  - ERYTHROSIS [None]
  - HEAD DISCOMFORT [None]
  - HEADACHE [None]
  - HYPERHIDROSIS [None]
  - PAIN [None]
  - PALPITATIONS [None]
  - SOMNOLENCE [None]
